FAERS Safety Report 8604924-0 (Version None)
Quarter: 2012Q3

REPORT INFORMATION
  Report Type: 
  Country: None (occurrence: None)
  Receive Date: 20120820
  Receipt Date: 20120808
  Transmission Date: 20120928
  Serious: Yes (Hospitalization)
  Sender: FDA-Public Use
  Company Number: FR-NOVOPROD-357903

PATIENT
  Age: 77 Year
  Sex: Male

DRUGS (14)
  1. NOVOSEVEN [Suspect]
     Dosage: 5 MG, QD
     Route: 042
  2. NEXIUM [Concomitant]
     Dosage: 20 MG, QD
     Route: 048
     Dates: start: 20120725
  3. NOVOSEVEN [Suspect]
     Dosage: 2 MG/IV
  4. WILFACTIN [Concomitant]
  5. PREDNISONE TAB [Concomitant]
  6. METFORMIN HCL [Concomitant]
     Dosage: 700 MG, QD
     Route: 048
     Dates: start: 20120725
  7. NOVOSEVEN [Suspect]
     Indication: PRODUCT USED FOR UNKNOWN INDICATION
     Dosage: 5 MG, QD
     Route: 042
  8. NOVOSEVEN [Suspect]
     Dosage: 1 MG, QD
  9. NICARDIPINE HCL [Concomitant]
     Dosage: IV
     Route: 042
     Dates: start: 20120725, end: 20120727
  10. CHONDROSULF [Concomitant]
  11. LOVENOX [Concomitant]
     Indication: PROPHYLAXIS
  12. CRESTOR [Concomitant]
     Dosage: 5 MG, QD
     Route: 048
     Dates: start: 20120725
  13. FENOFIBRATE BIOGARAN [Concomitant]
     Dosage: 145 MG, QD
     Route: 048
  14. ASPIRIN [Concomitant]
     Dosage: 75 MG, QD
     Route: 048

REACTIONS (2)
  - ISCHAEMIC STROKE [None]
  - SENSORIMOTOR DISORDER [None]
